FAERS Safety Report 24329477 (Version 1)
Quarter: 2024Q3

REPORT INFORMATION
  Report Type: Report from Study
  Country: US (occurrence: US)
  Receive Date: 20240917
  Receipt Date: 20240917
  Transmission Date: 20241016
  Serious: Yes (Death)
  Sender: OTSUKA
  Company Number: US-OTSUKA-2024_025833

PATIENT
  Sex: Female

DRUGS (1)
  1. TOLVAPTAN [Suspect]
     Active Substance: TOLVAPTAN
     Indication: Inappropriate antidiuretic hormone secretion
     Dosage: 7.5 MG, QD (15 MG HALF TABLET DAILY)
     Route: 048

REACTIONS (3)
  - Neoplasm malignant [Fatal]
  - Wrong technique in product usage process [Unknown]
  - Underdose [Unknown]
